FAERS Safety Report 9445005 (Version 1)
Quarter: 2013Q3

REPORT INFORMATION
  Report Type: Spontaneous
  Country: US (occurrence: US)
  Receive Date: 20130807
  Receipt Date: 20130807
  Transmission Date: 20140515
  Serious: No
  Sender: FDA-Public Use
  Company Number: US-009507513-1308USA003069

PATIENT
  Sex: Female

DRUGS (2)
  1. GYNE LOTRIMIN 7 DAY CREAM [Suspect]
     Indication: FUNGAL SKIN INFECTION
     Dosage: UNK, UNKNOWN
     Route: 061
  2. GYNE LOTRIMIN 7 DAY CREAM [Suspect]
     Indication: MEDICAL OBSERVATION

REACTIONS (1)
  - Drug administered at inappropriate site [Unknown]
